FAERS Safety Report 9514524 (Version 3)
Quarter: 2013Q3

REPORT INFORMATION
  Report Type: Spontaneous
  Country: GB (occurrence: GB)
  Receive Date: 20130911
  Receipt Date: 20130912
  Transmission Date: 20140515
  Serious: Yes (Other)
  Sender: FDA-Public Use
  Company Number: GB-009507513-1305GBR010745

PATIENT
  Age: 28 Year
  Sex: Female

DRUGS (2)
  1. IMPLANON [Suspect]
     Dosage: UNKNOWN
     Route: 030
     Dates: start: 20100802
  2. IMPLANON [Suspect]
     Dosage: UNKNOWN
     Route: 059
     Dates: start: 201307

REACTIONS (10)
  - Chest pain [Unknown]
  - Cough [Unknown]
  - Overdose [Unknown]
  - Complication of device removal [Unknown]
  - Device deployment issue [Unknown]
  - Device dislocation [Unknown]
  - Incorrect route of drug administration [Unknown]
  - Incorrect drug administration duration [Unknown]
  - Medical device complication [Unknown]
  - Surgery [Unknown]
